FAERS Safety Report 10680673 (Version 1)
Quarter: 2014Q4

REPORT INFORMATION
  Report Type: Spontaneous
  Country: US (occurrence: US)
  Receive Date: 20141229
  Receipt Date: 20141229
  Transmission Date: 20150529
  Serious: No
  Sender: FDA-Public Use
  Company Number: US-SA-2014SA123565

PATIENT
  Sex: Female

DRUGS (17)
  1. GLUCOSAMINE [Concomitant]
     Active Substance: GLUCOSAMINE
  2. PANTHENOL/RETINOL/THIAMINE HYDROCHLORIDE/ASCORBIC ACID/ERGOCALCIFEROL/FOLIC ACID/RIBOFLAVIN/NICOTINA [Concomitant]
  3. GLIMEPIRIDE. [Concomitant]
     Active Substance: GLIMEPIRIDE
  4. LOMOTIL [Concomitant]
     Active Substance: ATROPINE SULFATE\DIPHENOXYLATE HYDROCHLORIDE
  5. IMODIUM [Concomitant]
     Active Substance: LOPERAMIDE HYDROCHLORIDE
  6. SIMVASTATIN. [Concomitant]
     Active Substance: SIMVASTATIN
  7. TRIAMTERENE. [Concomitant]
     Active Substance: TRIAMTERENE
  8. WELLBUTRIN [Concomitant]
     Active Substance: BUPROPION HYDROCHLORIDE
  9. SUTENT [Suspect]
     Active Substance: SUNITINIB MALATE
     Dosage: RESUME HER SUTENT 37.5 MG DAILY 2 WEEKS ON AND 1 WEEK OFFON 10 AUG
     Route: 065
     Dates: start: 20140810
  10. XANAX [Concomitant]
     Active Substance: ALPRAZOLAM
  11. SUTENT [Suspect]
     Active Substance: SUNITINIB MALATE
     Dosage: 50 MG DAILY X28 DAYS WITH 14 OFF
     Route: 065
     Dates: start: 20130121
  12. LANTUS [Concomitant]
     Active Substance: INSULIN GLARGINE
  13. AMLODIPINE [Concomitant]
     Active Substance: AMLODIPINE BESYLATE
  14. METOPROLOL [Concomitant]
     Active Substance: METOPROLOL
  15. PLAVIX [Suspect]
     Active Substance: CLOPIDOGREL BISULFATE
     Route: 065
  16. BENADRYL [Concomitant]
     Active Substance: DIPHENHYDRAMINE HYDROCHLORIDE
  17. LEVOTHYROXINE [Concomitant]
     Active Substance: LEVOTHYROXINE

REACTIONS (7)
  - Incisional hernia [Unknown]
  - Abdominal pain upper [Unknown]
  - Impaired healing [Recovering/Resolving]
  - Diarrhoea [Recovered/Resolved]
  - Wound [Recovering/Resolving]
  - Constipation [Unknown]
  - Faeces discoloured [Unknown]
